FAERS Safety Report 10162435 (Version 1)
Quarter: 2014Q2

REPORT INFORMATION
  Report Type: Spontaneous
  Country: US (occurrence: US)
  Receive Date: 20140509
  Receipt Date: 20140509
  Transmission Date: 20141212
  Serious: No
  Sender: FDA-Public Use
  Company Number: US-GLAXOSMITHKLINE-A1032670A

PATIENT
  Age: 10 Year
  Sex: Female

DRUGS (3)
  1. ALTABAX [Suspect]
     Indication: IMPETIGO
     Dosage: 1APP TWICE PER DAY
     Route: 061
     Dates: start: 20130710, end: 20130710
  2. ADVIL [Concomitant]
  3. VITAMIN [Concomitant]

REACTIONS (3)
  - Burning sensation [Unknown]
  - Facial pain [Unknown]
  - Staphylococcus test positive [Unknown]
